FAERS Safety Report 6739003-0 (Version None)
Quarter: 2010Q2

REPORT INFORMATION
  Report Type: 
  Country: None (occurrence: None)
  Receive Date: 20100524
  Receipt Date: 20100524
  Transmission Date: 20101027
  Serious: No
  Sender: FDA-Public Use
  Company Number: None

PATIENT
  Age: 39 Year
  Sex: Female
  Weight: 63.5036 kg

DRUGS (2)
  1. AZITHROMYCIN [Suspect]
     Indication: COUGH
     Dosage: 5 DOSAGES 1 TABLET A DAY PO
     Route: 048
     Dates: start: 20100505, end: 20100509
  2. AZITHROMYCIN [Suspect]
     Indication: EAR INFECTION
     Dosage: 5 DOSAGES 1 TABLET A DAY PO
     Route: 048
     Dates: start: 20100505, end: 20100509

REACTIONS (1)
  - DRUG HYPERSENSITIVITY [None]
